FAERS Safety Report 20353358 (Version 1)
Quarter: 2022Q1

REPORT INFORMATION
  Report Type: Spontaneous
  Country: GB (occurrence: GB)
  Receive Date: 20220119
  Receipt Date: 20220119
  Transmission Date: 20220423
  Serious: Yes (Other)
  Sender: FDA-Public Use
  Company Number: None

PATIENT
  Age: 44 Year
  Sex: Male
  Weight: 69 kg

DRUGS (6)
  1. ZYPADHERA [Suspect]
     Active Substance: OLANZAPINE PAMOATE
     Indication: Schizophrenia
     Dosage: UNK UNK, UNKNOWN
     Route: 030
     Dates: start: 20160626
  2. ZYPADHERA [Suspect]
     Active Substance: OLANZAPINE PAMOATE
     Indication: Schizophrenia
     Dosage: UNK UNK, UNKNOWN
     Route: 030
     Dates: start: 20160626
  3. ZYPADHERA [Suspect]
     Active Substance: OLANZAPINE PAMOATE
     Indication: Schizophrenia
     Dosage: UNK UNK, UNKNOWN
     Route: 030
     Dates: start: 20160626
  4. ZYPADHERA [Suspect]
     Active Substance: OLANZAPINE PAMOATE
     Dosage: UNK UNK, UNKNOWN
     Route: 030
     Dates: start: 20220107, end: 20220107
  5. ZYPADHERA [Suspect]
     Active Substance: OLANZAPINE PAMOATE
     Dosage: UNK UNK, UNKNOWN
     Route: 030
     Dates: start: 20220107, end: 20220107
  6. ZYPADHERA [Suspect]
     Active Substance: OLANZAPINE PAMOATE
     Dosage: UNK UNK, UNKNOWN
     Route: 030
     Dates: start: 20220107, end: 20220107

REACTIONS (12)
  - Insomnia [Not Recovered/Not Resolved]
  - Coordination abnormal [Not Recovered/Not Resolved]
  - Heart rate irregular [Not Recovered/Not Resolved]
  - Upper limb fracture [Recovered/Resolved]
  - Blood pressure increased [Not Recovered/Not Resolved]
  - Consciousness fluctuating [Not Recovered/Not Resolved]
  - Post-injection delirium sedation syndrome [Not Recovered/Not Resolved]
  - Dizziness [Not Recovered/Not Resolved]
  - Disorientation [Not Recovered/Not Resolved]
  - Somnolence [Not Recovered/Not Resolved]
  - Tinea infection [Unknown]
  - Onychomycosis [Unknown]

NARRATIVE: CASE EVENT DATE: 20180901
